FAERS Safety Report 9789202 (Version 2)
Quarter: 2013Q4

REPORT INFORMATION
  Report Type: Spontaneous
  Country: US (occurrence: US)
  Receive Date: 20131230
  Receipt Date: 20131230
  Transmission Date: 20140711
  Serious: No
  Sender: FDA-Public Use
  Company Number: US-009507513-1312USA010553

PATIENT
  Sex: Female
  Weight: 63.95 kg

DRUGS (25)
  1. ZEGERID OTC CAPSULES [Suspect]
     Indication: ANTACID THERAPY
     Dosage: UNK UNK, QOD
     Route: 048
  2. OS-CAL D [Concomitant]
     Indication: PRODUCT USED FOR UNKNOWN INDICATION
     Dosage: 500 MG, QD
  3. SYNTHROID [Concomitant]
     Indication: HYPOTHYROIDISM
     Dosage: .175 MG, UNK
  4. EVISTA [Concomitant]
     Indication: PRODUCT USED FOR UNKNOWN INDICATION
     Dosage: 60 MG, UNK
     Dates: start: 20030502
  5. ONE-A-DAY WOMEN^S [Concomitant]
     Indication: PRODUCT USED FOR UNKNOWN INDICATION
     Dosage: UNK, QD
  6. LASIX (FUROSEMIDE) [Concomitant]
     Indication: LOCAL SWELLING
     Dosage: 40 MG, UNK
     Dates: start: 20060914
  7. ZOCOR [Concomitant]
     Indication: BLOOD CHOLESTEROL
     Dosage: 40 MG, UNK
  8. DITROPAN XL [Concomitant]
     Indication: PRODUCT USED FOR UNKNOWN INDICATION
     Dosage: 5 MG, BID
  9. K-DUR [Concomitant]
     Indication: PRODUCT USED FOR UNKNOWN INDICATION
     Dosage: 20 MG, UNK
  10. MAGNESIUM CHLORIDE [Concomitant]
     Indication: PRODUCT USED FOR UNKNOWN INDICATION
     Dosage: 64 MG, UNK
  11. DIOVAN [Concomitant]
     Indication: BLOOD PRESSURE
     Dosage: 160/25
  12. VITAMIN D (UNSPECIFIED) [Concomitant]
     Indication: PRODUCT USED FOR UNKNOWN INDICATION
     Dosage: 1000 MG, UNK
  13. ELAVIL (ALLOPURINOL) [Concomitant]
     Indication: PRODUCT USED FOR UNKNOWN INDICATION
     Dosage: 25 MG, UNK
  14. WARFARIN [Concomitant]
     Indication: PRODUCT USED FOR UNKNOWN INDICATION
     Dosage: 5 MG, UNK
  15. REQUIP [Concomitant]
     Indication: RESTLESS LEGS SYNDROME
     Dosage: 2 MG, UNK
  16. DIGOXIN [Concomitant]
     Indication: PRODUCT USED FOR UNKNOWN INDICATION
     Dosage: .125 MG, UNK
  17. ADVAIR [Concomitant]
     Indication: PRODUCT USED FOR UNKNOWN INDICATION
     Dosage: 250/50
     Dates: start: 20050704
  18. SPIRIVA HANDIHALER [Concomitant]
     Indication: PRODUCT USED FOR UNKNOWN INDICATION
     Dosage: UNK
     Route: 055
     Dates: start: 20050704
  19. ALBUTEROL SULFATE [Concomitant]
     Indication: PRODUCT USED FOR UNKNOWN INDICATION
     Dosage: 205 MG, PRN
  20. OXYGEN [Concomitant]
     Indication: PRODUCT USED FOR UNKNOWN INDICATION
     Dosage: UNK, PRN
     Dates: start: 20060320
  21. TYLENOL EXTRA STRENGTH [Concomitant]
     Indication: PRODUCT USED FOR UNKNOWN INDICATION
     Dosage: UNK, PRN
  22. MAALOX (CALCIUM CARBONATE) [Concomitant]
     Indication: PRODUCT USED FOR UNKNOWN INDICATION
     Dosage: UNK, PRN
  23. SINGULAIR [Concomitant]
     Indication: HYPERSENSITIVITY
     Dosage: 10 MG, UNK
     Route: 048
  24. MIRALAX [Concomitant]
     Indication: PRODUCT USED FOR UNKNOWN INDICATION
     Dosage: UNK, QOD
     Route: 048
  25. CLARITIN [Concomitant]
     Indication: PRODUCT USED FOR UNKNOWN INDICATION
     Dosage: 10 MG, QD
     Route: 048

REACTIONS (1)
  - Inappropriate schedule of drug administration [Unknown]
